FAERS Safety Report 18671329 (Version 1)
Quarter: 2020Q4

REPORT INFORMATION
  Report Type: Other
  Country: IT (occurrence: IT)
  Receive Date: 20201228
  Receipt Date: 20201228
  Transmission Date: 20210114
  Serious: Yes (Death, Other)
  Sender: FDA-Public Use
  Company Number: IT-ROCHE-2739011

PATIENT

DRUGS (2)
  1. ALTEPLASE. [Suspect]
     Active Substance: ALTEPLASE
     Indication: COVID-19
  2. ALTEPLASE. [Suspect]
     Active Substance: ALTEPLASE
     Indication: CEREBROVASCULAR ACCIDENT
     Route: 042

REACTIONS (7)
  - Cerebral haemorrhage [Unknown]
  - Haemorrhagic infarction [Unknown]
  - Arteriosclerosis [Fatal]
  - Embolic stroke [Fatal]
  - Off label use [Unknown]
  - Intentional product use issue [Unknown]
  - Haemorrhage [Unknown]
